FAERS Safety Report 4920453-X (Version None)
Quarter: 2006Q1

REPORT INFORMATION
  Report Type: 
  Country: None (occurrence: None)
  Receive Date: 20060223
  Receipt Date: 20051018
  Transmission Date: 20060701
  Serious: Yes (Hospitalization, Disabling)
  Sender: FDA-Public Use
  Company Number: US-MERCK-0510USA07631

PATIENT
  Age: 74 Year
  Sex: Male
  Weight: 84 kg

DRUGS (14)
  1. VIOXX [Suspect]
     Indication: RHEUMATOID ARTHRITIS
     Route: 048
     Dates: start: 19991227, end: 20020507
  2. FLOMAX (MORNIFLUMATE) [Concomitant]
     Indication: PROSTATIC DISORDER
     Route: 065
  3. ZYRTEC [Concomitant]
     Indication: HYPERSENSITIVITY
     Route: 065
  4. LIPITOR [Concomitant]
     Indication: BLOOD CHOLESTEROL INCREASED
     Route: 065
  5. PHENAZOPYRIDINE HYDROCHLORIDE [Concomitant]
     Indication: PROSTATIC DISORDER
     Route: 065
  6. VIAGRA [Concomitant]
     Indication: ERECTILE DYSFUNCTION
     Route: 065
  7. HYDROCODONE HYDROCHLORIDE [Concomitant]
     Indication: PAIN
     Route: 065
     Dates: start: 20010124, end: 20010218
  8. ZOCOR [Concomitant]
     Indication: BLOOD CHOLESTEROL INCREASED
     Route: 065
  9. BACLOFEN [Concomitant]
     Indication: PAIN
     Route: 065
     Dates: start: 20001214
  10. NEURONTIN [Concomitant]
     Indication: PAIN
     Route: 065
     Dates: start: 20001214
  11. OXYCONTIN [Concomitant]
     Indication: PAIN
     Route: 065
     Dates: start: 20001201
  12. ZOLOFT [Concomitant]
     Indication: ANXIETY
     Route: 065
  13. ALPHAGAN [Concomitant]
     Indication: OPHTHALMIC FLUID DRAINAGE
     Route: 065
  14. TRAVATAN [Concomitant]
     Indication: OPHTHALMIC FLUID DRAINAGE
     Route: 065

REACTIONS (14)
  - APHASIA [None]
  - ASTHENIA [None]
  - CAROTID ARTERY OCCLUSION [None]
  - CAROTID ARTERY STENOSIS [None]
  - CEREBRAL INFARCTION [None]
  - CEREBROVASCULAR ACCIDENT [None]
  - CONJUNCTIVITIS [None]
  - EXTRASYSTOLES [None]
  - FALL [None]
  - HAEMATURIA [None]
  - IRON DEFICIENCY ANAEMIA [None]
  - MONOPARESIS [None]
  - PARAPARESIS [None]
  - VENTRICULAR EXTRASYSTOLES [None]
